FAERS Safety Report 4359197-4 (Version None)
Quarter: 2004Q2

REPORT INFORMATION
  Report Type: 
  Country: None (occurrence: None)
  Receive Date: 20040512
  Receipt Date: 20040429
  Transmission Date: 20050107
  Serious: Yes (Other)
  Sender: FDA-Public Use
  Company Number: 2004211120BE

PATIENT
  Age: 48 Year
  Sex: Male

DRUGS (4)
  1. MEDROL [Suspect]
     Dates: start: 20021008
  2. BMS224818 [Suspect]
     Dosage: 10 MG/KG, IV
     Route: 042
     Dates: start: 20021006
  3. BASILIXIMAB(BASILIXIMAB) [Suspect]
     Dosage: 20 MG, QD, IV
     Route: 042
     Dates: start: 20021006, end: 20021011
  4. CELLCEPT [Suspect]
     Dates: start: 20021006

REACTIONS (2)
  - BLOOD CREATININE INCREASED [None]
  - KIDNEY TRANSPLANT REJECTION [None]
